FAERS Safety Report 5574020-8 (Version None)
Quarter: 2007Q4

REPORT INFORMATION
  Report Type: 
  Country: None (occurrence: None)
  Receive Date: 20071221
  Receipt Date: 20071211
  Transmission Date: 20080405
  Serious: Yes (Death, Other)
  Sender: FDA-Public Use
  Company Number: 2007-04042

PATIENT
  Age: 67 Year
  Sex: Male
  Weight: 55 kg

DRUGS (2)
  1. VELCADE [Suspect]
     Indication: MULTIPLE MYELOMA
     Dosage: 1.30 MG/M2, INTRAVENOUS
     Route: 042
     Dates: start: 20071120, end: 20071123
  2. DEXAMETHASONE TAB [Concomitant]

REACTIONS (6)
  - ATRIAL FIBRILLATION [None]
  - CONDITION AGGRAVATED [None]
  - DEMENTIA [None]
  - DISEASE PROGRESSION [None]
  - PLATELET COUNT DECREASED [None]
  - THROMBOSIS [None]
